FAERS Safety Report 17526453 (Version 1)
Quarter: 2020Q1

REPORT INFORMATION
  Report Type: Spontaneous
  Country: FR (occurrence: FR)
  Receive Date: 20200311
  Receipt Date: 20200311
  Transmission Date: 20200409
  Serious: Yes (Other)
  Sender: FDA-Public Use
  Company Number: FR-AMGEN-FRASP2020038020

PATIENT
  Age: 68 Year
  Sex: Male
  Weight: 78 kg

DRUGS (3)
  1. NPLATE [Suspect]
     Active Substance: ROMIPLOSTIM
     Dosage: 0.90 OR 450 MICROGRAM, QWK
     Route: 065
  2. NPLATE [Suspect]
     Active Substance: ROMIPLOSTIM
     Indication: PRODUCT USED FOR UNKNOWN INDICATION
     Dosage: 0.69 UNK, QWK
     Route: 065
     Dates: start: 2011
  3. NPLATE [Suspect]
     Active Substance: ROMIPLOSTIM
     Dosage: 0.75 (VOLUME INJECTED), QWK
     Route: 065

REACTIONS (1)
  - Platelet count decreased [Unknown]
